FAERS Safety Report 7709849-0 (Version None)
Quarter: 2011Q3

REPORT INFORMATION
  Report Type: 
  Country: None (occurrence: None)
  Receive Date: 20110825
  Receipt Date: 20110815
  Transmission Date: 20111222
  Serious: Yes (Hospitalization)
  Sender: FDA-Public Use
  Company Number: US-MERCK-1107USA00018

PATIENT
  Age: 50 Year
  Sex: Female
  Weight: 65 kg

DRUGS (16)
  1. TENORMIN [Concomitant]
     Route: 065
  2. SINGULAIR [Concomitant]
     Route: 048
     Dates: start: 20090101
  3. FOSAMAX [Suspect]
     Route: 048
     Dates: start: 20010401, end: 20110122
  4. CALCIUM (UNSPECIFIED) AND VITAMIN D (UNSPECIFIED) [Concomitant]
     Route: 065
  5. NEXIUM [Concomitant]
     Route: 065
  6. CALCIUM (UNSPECIFIED) [Concomitant]
     Route: 065
     Dates: start: 19970101
  7. ALLEGRA [Concomitant]
     Route: 065
     Dates: start: 20090101
  8. PROVERA [Concomitant]
     Route: 065
  9. ESTRACE [Concomitant]
     Route: 065
  10. VIVACTIL [Concomitant]
     Route: 065
  11. HYDROCHLOROTHIAZIDE [Concomitant]
     Route: 065
     Dates: start: 20101201
  12. FOSAMAX [Suspect]
     Indication: OSTEOPOROSIS
     Route: 048
     Dates: start: 19970701, end: 20010406
  13. CENTRUM SILVER [Concomitant]
     Dosage: 1 DAILY
     Route: 065
     Dates: start: 19970101
  14. [THERAPY UNSPECIFIED] [Concomitant]
     Dosage: BLOOD PRESSURE MEDICATION
     Route: 065
  15. ASPIRIN [Concomitant]
     Route: 065
     Dates: start: 20091101
  16. VITAMIN D (UNSPECIFIED) [Concomitant]
     Route: 065
     Dates: start: 19970101

REACTIONS (9)
  - FUNGAL INFECTION [None]
  - HYPOTENSION [None]
  - TOOTH IMPACTED [None]
  - FEMUR FRACTURE [None]
  - GASTRIC ULCER [None]
  - PAIN IN JAW [None]
  - VAGINAL HAEMORRHAGE [None]
  - BLOOD CHOLESTEROL INCREASED [None]
  - GASTRITIS [None]
